FAERS Safety Report 19480324 (Version 1)
Quarter: 2021Q2

REPORT INFORMATION
  Report Type: Spontaneous
  Country: US (occurrence: US)
  Receive Date: 20210630
  Receipt Date: 20210630
  Transmission Date: 20210717
  Serious: No
  Sender: FDA-Public Use
  Company Number: US-FOUNDATIONCONSUMERHC-2021-US-003656

PATIENT
  Age: 18 Year
  Sex: Female
  Weight: 52.16 kg

DRUGS (1)
  1. TAKE ACTION [Suspect]
     Active Substance: LEVONORGESTREL
     Indication: POST COITAL CONTRACEPTION
     Dosage: PLAN B 1.5MG ON 15?FEB?2021 AND TAKE ACTION 1.5MG ON 17?FEB?2021
     Route: 048
     Dates: start: 20210215, end: 20210217

REACTIONS (3)
  - Somnolence [Not Recovered/Not Resolved]
  - Vomiting [Recovered/Resolved]
  - Nausea [Not Recovered/Not Resolved]

NARRATIVE: CASE EVENT DATE: 20210217
